FAERS Safety Report 25637783 (Version 1)
Quarter: 2025Q3

REPORT INFORMATION
  Report Type: Report from Study
  Country: TH (occurrence: TH)
  Receive Date: 20250804
  Receipt Date: 20250804
  Transmission Date: 20251021
  Serious: Yes (Other)
  Sender: ALEXION PHARMACEUTICALS
  Company Number: TH-AstraZeneca-CH-00922953A

PATIENT
  Age: 69 Year
  Sex: Female

DRUGS (1)
  1. OSIMERTINIB [Suspect]
     Active Substance: OSIMERTINIB
     Indication: Non-small cell lung cancer
     Dates: start: 20250331

REACTIONS (19)
  - Pleural effusion [Not Recovered/Not Resolved]
  - Lung carcinoma cell type unspecified stage 0 [Unknown]
  - Bone cancer [Unknown]
  - Chest pain [Unknown]
  - Metastasis [Unknown]
  - Pain [Unknown]
  - Cough [Unknown]
  - Dyspnoea [Unknown]
  - Blood alkaline phosphatase increased [Unknown]
  - Carcinoembryonic antigen increased [Unknown]
  - Oedema [Unknown]
  - Herpes zoster infection neurological [Unknown]
  - Metastases to bone [Unknown]
  - Diarrhoea [Unknown]
  - Night sweats [Unknown]
  - Dysuria [Unknown]
  - Dizziness [Unknown]
  - Parophthalmia [Unknown]
  - Weight decreased [Unknown]

NARRATIVE: CASE EVENT DATE: 20250331
